FAERS Safety Report 21252505 (Version 2)
Quarter: 2022Q3

REPORT INFORMATION
  Report Type: Report from Study
  Country: DE (occurrence: DE)
  Receive Date: 20220825
  Receipt Date: 20220829
  Transmission Date: 20221027
  Serious: Yes (Hospitalization)
  Sender: FDA-Public Use
  Company Number: DE-Clinigen Group PLC/ Clinigen Healthcare Ltd-DE-CLGN-22-00341

PATIENT
  Age: 58 Year
  Sex: Male
  Weight: 98.5 kg

DRUGS (22)
  1. PROLEUKIN [Suspect]
     Active Substance: ALDESLEUKIN
     Indication: Neoplasm
     Route: 042
     Dates: start: 20220809, end: 20220813
  2. LIFILEUCEL [Suspect]
     Active Substance: LIFILEUCEL
     Indication: Neoplasm
     Route: 042
     Dates: start: 20220809, end: 20220809
  3. CYCLOPHOSPHAMIDE [Suspect]
     Active Substance: CYCLOPHOSPHAMIDE
     Indication: Neoplasm
     Route: 042
     Dates: start: 20220802, end: 20220803
  4. FLUDARABINE [Suspect]
     Active Substance: FLUDARABINE PHOSPHATE
     Indication: Neoplasm
     Route: 042
     Dates: start: 20220804, end: 20220808
  5. PEMBROLIZUMAB [Suspect]
     Active Substance: PEMBROLIZUMAB
     Indication: Neoplasm
     Route: 042
     Dates: start: 20220629, end: 20220629
  6. IBUPROFEN [Concomitant]
     Active Substance: IBUPROFEN
     Indication: Osteoarthritis
     Route: 048
     Dates: start: 2012
  7. AMPHO-MORONAL [Concomitant]
     Active Substance: AMPHOTERICIN B
     Indication: Prophylaxis
     Route: 042
     Dates: start: 20220802
  8. APREPITANT [Concomitant]
     Active Substance: APREPITANT
     Indication: Prophylaxis
     Route: 048
     Dates: start: 20220802, end: 20220802
  9. COTRIM [Concomitant]
     Active Substance: SULFAMETHOXAZOLE\TRIMETHOPRIM
     Indication: Prophylaxis
     Route: 048
     Dates: start: 20220803
  10. VALTREX [Concomitant]
     Active Substance: VALACYCLOVIR HYDROCHLORIDE
     Indication: Prophylaxis
     Route: 048
     Dates: start: 20220801
  11. JONOSTERIL [Concomitant]
     Indication: Prophylaxis
     Route: 042
     Dates: start: 20220802
  12. INNOHEP [Concomitant]
     Active Substance: TINZAPARIN SODIUM
     Indication: Prophylaxis
     Route: 058
     Dates: start: 20220801
  13. ZOPICLONE [Concomitant]
     Active Substance: ZOPICLONE
     Indication: Prophylaxis
     Route: 048
     Dates: start: 20220802
  14. FRESUBIN [Concomitant]
     Active Substance: AMINO ACIDS\DEXTROSE\ELECTROLYTES NOS\SOYBEAN OIL\VITAMINS
     Indication: Decreased appetite
     Route: 048
     Dates: start: 20220804
  15. DIMENHYDRINATE [Concomitant]
     Active Substance: DIMENHYDRINATE
     Indication: Vomiting
     Route: 042
     Dates: start: 20220809
  16. GRANISETRON [Concomitant]
     Active Substance: GRANISETRON
     Indication: Vomiting
     Route: 042
     Dates: start: 20220802
  17. GRANISETRON [Concomitant]
     Active Substance: GRANISETRON
     Indication: Prophylaxis
     Route: 042
     Dates: start: 20220809
  18. AMINO ACIDS\DEXTROSE\ELECTROLYTES NOS\SOYBEAN OIL [Concomitant]
     Active Substance: AMINO ACIDS\DEXTROSE\ELECTROLYTES NOS\SOYBEAN OIL
     Indication: Decreased appetite
     Route: 042
     Dates: start: 20220811
  19. ACETAMINOPHEN [Concomitant]
     Active Substance: ACETAMINOPHEN
     Indication: Prophylaxis
     Route: 048
     Dates: start: 20220808
  20. ALDIAMED [Concomitant]
     Dosage: 1 APPLICATION
     Route: 048
     Dates: start: 20220803
  21. ZOFRAN [Concomitant]
     Active Substance: ONDANSETRON HYDROCHLORIDE
     Indication: Nausea
     Route: 048
     Dates: start: 20220803
  22. INVESTIGATIONAL PRODUCT [Suspect]
     Active Substance: INVESTIGATIONAL PRODUCT

REACTIONS (1)
  - General physical health deterioration [Recovering/Resolving]

NARRATIVE: CASE EVENT DATE: 20220814
